FAERS Safety Report 16269594 (Version 1)
Quarter: 2019Q2

REPORT INFORMATION
  Report Type: Spontaneous
  Country: US (occurrence: US)
  Receive Date: 20190503
  Receipt Date: 20190503
  Transmission Date: 20190711
  Serious: No
  Sender: FDA-Public Use
  Company Number: US-PFIZER INC-2019182261

PATIENT
  Age: 55 Year
  Sex: Female
  Weight: 71.67 kg

DRUGS (7)
  1. GABAPENTIN. [Suspect]
     Active Substance: GABAPENTIN
     Indication: LUPUS MYOSITIS
  2. METOPROLOL. [Concomitant]
     Active Substance: METOPROLOL
     Indication: HYPERTENSION
     Dosage: 50 MG, 2X/DAY
  3. GABAPENTIN. [Suspect]
     Active Substance: GABAPENTIN
     Indication: FIBROMYALGIA
     Dosage: 300 MG, 4X/DAY
     Route: 048
  4. MORPHINE SULFATE. [Suspect]
     Active Substance: MORPHINE SULFATE
     Indication: PAIN
     Dosage: 30 MG, 2X/DAY(TWICE A DAY AT MORNING AT NIGHT)
     Route: 048
  5. DILAUDID [Suspect]
     Active Substance: HYDROMORPHONE HYDROCHLORIDE
     Indication: PAIN
     Dosage: 4 MG, 4X/DAY
     Route: 048
  6. LEVOTHYROXINE. [Concomitant]
     Active Substance: LEVOTHYROXINE
     Indication: AUTOIMMUNE THYROIDITIS
     Dosage: 125 UG, 1X/DAY [IN THE MORNING]
  7. GABAPENTIN. [Suspect]
     Active Substance: GABAPENTIN
     Indication: BURSITIS

REACTIONS (2)
  - Drug ineffective for unapproved indication [Unknown]
  - Weight increased [Unknown]
